FAERS Safety Report 9639393 (Version 2)
Quarter: 2013Q4

REPORT INFORMATION
  Report Type: Spontaneous
  Country: US (occurrence: US)
  Receive Date: 20131022
  Receipt Date: 20131118
  Transmission Date: 20140711
  Serious: Yes (Other)
  Sender: FDA-Public Use
  Company Number: US-RB-059647-13

PATIENT
  Age: 57 Year
  Sex: Female

DRUGS (2)
  1. SUBOXONE TABLET [Suspect]
     Indication: DRUG DEPENDENCE
     Dosage: UNKNOWN DOSING DETAILS
     Route: 060
     Dates: start: 2008, end: 2011
  2. SUBOXONE FILM [Suspect]
     Indication: DRUG DEPENDENCE
     Dosage: SUBOXONE FILM; DOSING DETAILS UNKNOWN
     Route: 060
     Dates: start: 2011, end: 2013

REACTIONS (10)
  - Macular degeneration [Not Recovered/Not Resolved]
  - Retinal detachment [Not Recovered/Not Resolved]
  - Diplopia [Not Recovered/Not Resolved]
  - Uveitis [Not Recovered/Not Resolved]
  - Condition aggravated [Not Recovered/Not Resolved]
  - Extra dose administered [Recovered/Resolved]
  - Visual acuity reduced [Not Recovered/Not Resolved]
  - Sudden onset of sleep [Not Recovered/Not Resolved]
  - Crying [Recovered/Resolved]
  - Wrong technique in drug usage process [Recovered/Resolved]
